FAERS Safety Report 11298327 (Version 1)
Quarter: 2015Q3

REPORT INFORMATION
  Report Type: Spontaneous
  Country: US (occurrence: US)
  Receive Date: 20150722
  Receipt Date: 20150722
  Transmission Date: 20151125
  Serious: Yes (Death)
  Sender: FDA-Public Use
  Company Number: US-ELI_LILLY_AND_COMPANY-US201109001831

PATIENT
  Age: 68 Year
  Sex: Female

DRUGS (5)
  1. LOVENOX [Concomitant]
     Active Substance: ENOXAPARIN SODIUM
  2. COUMADIN [Concomitant]
     Active Substance: WARFARIN SODIUM
  3. ASPIRIN. [Concomitant]
     Active Substance: ASPIRIN
  4. EFFIENT [Suspect]
     Active Substance: PRASUGREL HYDROCHLORIDE
     Dosage: 60 MG, UNKNOWN
     Dates: start: 20110901
  5. ANGIOMAX [Concomitant]
     Active Substance: BIVALIRUDIN

REACTIONS (1)
  - Retroperitoneal haemorrhage [Fatal]

NARRATIVE: CASE EVENT DATE: 20110901
